FAERS Safety Report 8325402-2 (Version None)
Quarter: 2012Q2

REPORT INFORMATION
  Report Type: 
  Country: None (occurrence: None)
  Receive Date: 20120501
  Receipt Date: 20100420
  Transmission Date: 20120825
  Serious: Yes (Other)
  Sender: FDA-Public Use
  Company Number: US-TEVA-2010002318

PATIENT
  Sex: Female

DRUGS (4)
  1. ZYRTEC [Concomitant]
     Indication: SINUS DISORDER
  2. NUVIGIL [Suspect]
     Dosage: 150 ;
     Route: 048
     Dates: start: 20100107
  3. NUVIGIL [Suspect]
     Indication: NARCOLEPSY
     Dosage: 250 ;
     Route: 048
     Dates: end: 20100401
  4. PAXIL [Concomitant]
     Indication: DEPRESSION

REACTIONS (4)
  - SUICIDAL IDEATION [None]
  - NAUSEA [None]
  - DEPRESSION [None]
  - DRUG INEFFECTIVE [None]
